FAERS Safety Report 5857814-0 (Version None)
Quarter: 2008Q3

REPORT INFORMATION
  Report Type: 
  Country: None (occurrence: None)
  Receive Date: 20080826
  Receipt Date: 20080815
  Transmission Date: 20090109
  Serious: Yes (Other)
  Sender: FDA-Public Use
  Company Number: US-JNJFOC-20080803946

PATIENT
  Sex: Female

DRUGS (1)
  1. DURAGESIC-100 [Suspect]
     Indication: PAIN
     Route: 062

REACTIONS (13)
  - APPLICATION SITE IRRITATION [None]
  - CATARACT [None]
  - CONSTIPATION [None]
  - DRUG DOSE OMISSION [None]
  - FALL [None]
  - INCORRECT DRUG ADMINISTRATION DURATION [None]
  - INJURY [None]
  - IRRITABILITY [None]
  - JOINT INJURY [None]
  - PHARMACEUTICAL PRODUCT COMPLAINT [None]
  - ROTATOR CUFF SYNDROME [None]
  - THERAPEUTIC RESPONSE DECREASED [None]
  - WITHDRAWAL SYNDROME [None]
